FAERS Safety Report 18574578 (Version 1)
Quarter: 2020Q4

REPORT INFORMATION
  Report Type: Spontaneous
  Country: ES (occurrence: ES)
  Receive Date: 20201203
  Receipt Date: 20201203
  Transmission Date: 20210114
  Serious: Yes (Life-Threatening, Hospitalization, Other)
  Sender: FDA-Public Use
  Company Number: NVSC2020ES321213

PATIENT
  Age: 33 Year
  Sex: Male
  Weight: 61 kg

DRUGS (2)
  1. AZATIOPRINA [Suspect]
     Active Substance: AZATHIOPRINE
     Indication: CROHN^S DISEASE
     Dosage: 150 MG, Q24H
     Route: 048
     Dates: start: 20201008, end: 20201123
  2. ADALIMUMAB [Suspect]
     Active Substance: ADALIMUMAB
     Indication: CROHN^S DISEASE
     Dosage: 40 MG (15 DAYS) (40MG/15DIAS)
     Route: 058
     Dates: start: 20201008, end: 20201123

REACTIONS (2)
  - Stomatitis [Recovering/Resolving]
  - Aplasia [Recovering/Resolving]

NARRATIVE: CASE EVENT DATE: 20201008
